FAERS Safety Report 5125646-7 (Version None)
Quarter: 2006Q4

REPORT INFORMATION
  Report Type: 
  Country: None (occurrence: None)
  Receive Date: 20061012
  Receipt Date: 20060930
  Transmission Date: 20070319
  Serious: Yes (Other)
  Sender: FDA-Public Use
  Company Number: FR-BAYER-200610928BFR

PATIENT
  Age: 69 Year
  Sex: Male
  Weight: 75 kg

DRUGS (8)
  1. MOXIFLOXACIN HYDROCHLORIDE [Suspect]
     Indication: OSTEITIS
     Dosage: TOTAL DAILY DOSE: 800 MG  UNIT DOSE: 400 MG
     Route: 048
     Dates: start: 20051229, end: 20060130
  2. MOXIFLOXACIN HYDROCHLORIDE [Suspect]
     Dosage: TOTAL DAILY DOSE: 800 MG  UNIT DOSE: 400 MG
     Route: 048
     Dates: start: 20060210, end: 20060310
  3. CIFLOX [Suspect]
     Indication: OSTEITIS
  4. GLUCOPHAGE [Concomitant]
     Indication: UNEVALUABLE EVENT
  5. DIGOXIN [Concomitant]
     Indication: UNEVALUABLE EVENT
  6. FORTUM [Concomitant]
     Indication: OSTEITIS
     Dates: end: 20060201
  7. RIFADIN [Concomitant]
     Indication: OSTEITIS
  8. FOZITEC [Concomitant]
     Indication: UNEVALUABLE EVENT

REACTIONS (3)
  - AGRANULOCYTOSIS [None]
  - BLOOD CREATINE PHOSPHOKINASE INCREASED [None]
  - HYPERKALAEMIA [None]
